FAERS Safety Report 4755111-8 (Version None)
Quarter: 2005Q3

REPORT INFORMATION
  Report Type: 
  Country: None (occurrence: None)
  Receive Date: 20050825
  Receipt Date: 20050815
  Transmission Date: 20060218
  Serious: Yes (Other)
  Sender: FDA-Public Use
  Company Number: 05-0093SU

PATIENT
  Age: 84 Year
  Sex: Female

DRUGS (1)
  1. BAYMYCARD (NISOLDIPINE) [Suspect]

REACTIONS (10)
  - DYSPNOEA [None]
  - HEADACHE [None]
  - HEART RATE INCREASED [None]
  - MUSCLE SPASMS [None]
  - MYALGIA [None]
  - MYOCARDIAL INFARCTION [None]
  - OEDEMA [None]
  - TREMOR [None]
  - VISUAL DISTURBANCE [None]
  - VOMITING [None]
